FAERS Safety Report 8612821-X (Version None)
Quarter: 2012Q3

REPORT INFORMATION
  Report Type: 
  Country: None (occurrence: None)
  Receive Date: 20120822
  Receipt Date: 20120224
  Transmission Date: 20120928
  Serious: No
  Sender: FDA-Public Use
  Company Number: US-ASTRAZENECA-2010SE53479

PATIENT
  Age: 46 Year
  Sex: Female
  Weight: 108.9 kg

DRUGS (19)
  1. SYMBICORT [Suspect]
     Route: 055
  2. BENTYL [Concomitant]
  3. LANTUS [Concomitant]
     Route: 058
  4. GLIPIZIDE [Concomitant]
  5. BUSPAR [Concomitant]
     Route: 048
  6. ALLEGRA [Concomitant]
  7. BENTYL [Concomitant]
  8. NASONEX [Concomitant]
  9. ATIVAN [Concomitant]
     Indication: ANXIETY
     Dosage: PRN
     Route: 048
  10. ASPIRIN [Concomitant]
     Route: 048
  11. ENALAPRIL MALEATE [Concomitant]
     Route: 048
  12. LAMICTAL [Concomitant]
     Route: 048
  13. SINGULAIR [Concomitant]
     Route: 048
  14. SYMBICORT [Suspect]
     Dosage: 160/4.5 TWO PUFFS BID
     Route: 055
  15. RANITIDINE [Concomitant]
  16. VENTOLIN [Concomitant]
     Dosage: 2 PUFFS, EVERY4-6 HOURS, PRN
  17. SEROQUEL [Suspect]
     Route: 048
  18. LOVASTATIN [Concomitant]
     Route: 048
  19. METFORMIN [Concomitant]

REACTIONS (23)
  - CHOLELITHIASIS [None]
  - SPONDYLITIS [None]
  - DEPRESSION [None]
  - OCULAR HYPERAEMIA [None]
  - LIBIDO DECREASED [None]
  - BIPOLAR DISORDER [None]
  - CONJUNCTIVITIS ALLERGIC [None]
  - HYPERSENSITIVITY [None]
  - DIVERTICULUM [None]
  - RHINORRHOEA [None]
  - HYPERTENSION [None]
  - TYPE 2 DIABETES MELLITUS [None]
  - GASTROOESOPHAGEAL REFLUX DISEASE [None]
  - HYPERLIPIDAEMIA [None]
  - INTRAOCULAR PRESSURE INCREASED [None]
  - EYE PRURITUS [None]
  - GLAUCOMA [None]
  - IRRITABLE BOWEL SYNDROME [None]
  - BLOOD PRESSURE INCREASED [None]
  - ANXIETY [None]
  - HUNGER [None]
  - ASTHMA [None]
  - INAPPROPRIATE SCHEDULE OF DRUG ADMINISTRATION [None]
